FAERS Safety Report 20501693 (Version 1)
Quarter: 2022Q1

REPORT INFORMATION
  Report Type: Spontaneous
  Country: CN (occurrence: CN)
  Receive Date: 20220222
  Receipt Date: 20220222
  Transmission Date: 20220424
  Serious: Yes (Other)
  Sender: FDA-Public Use
  Company Number: CN-BAYER-2022A024235

PATIENT
  Age: 63 Year
  Sex: Male

DRUGS (3)
  1. MOXIFLOXACIN [Suspect]
     Active Substance: MOXIFLOXACIN
     Indication: Anti-infective therapy
     Dosage: 0.4 G, QD
     Route: 041
     Dates: start: 20200527, end: 20200527
  2. THYMOPENTIN [Concomitant]
     Active Substance: THYMOPENTIN
     Indication: Immune enhancement therapy
     Dosage: 2 MG, QD
     Route: 041
     Dates: start: 20200516
  3. CEFOPERAZONE SODIUM\SULBACTAM SODIUM [Concomitant]
     Active Substance: CEFOPERAZONE SODIUM\SULBACTAM SODIUM
     Indication: Anti-infective therapy
     Dosage: 2 G, BID
     Route: 041
     Dates: start: 20200527, end: 20200603

REACTIONS (2)
  - Rhabdomyolysis [Recovered/Resolved]
  - Hepatic function abnormal [Recovered/Resolved]

NARRATIVE: CASE EVENT DATE: 20200527
